FAERS Safety Report 9601786 (Version 1)
Quarter: 2013Q4

REPORT INFORMATION
  Report Type: Spontaneous
  Country: US (occurrence: None)
  Receive Date: 20131004
  Receipt Date: 20131004
  Transmission Date: 20140711
  Serious: Yes (Disabling)
  Sender: FDA-Public Use
  Company Number: None

PATIENT
  Age: 51 Year
  Sex: Female
  Weight: 48.99 kg

DRUGS (5)
  1. IBANDRONATE SODIUM [Suspect]
     Indication: OSTEOPOROSIS POSTMENOPAUSAL
     Route: 048
     Dates: start: 20130930, end: 20130930
  2. TAMOXIFEN [Concomitant]
  3. CA/MG/ZN [Concomitant]
  4. MULTIVITAMIN WITH MINERALS [Concomitant]
  5. VIT D [Concomitant]

REACTIONS (7)
  - Nausea [None]
  - Dyspepsia [None]
  - Diarrhoea [None]
  - Headache [None]
  - Fatigue [None]
  - Arthralgia [None]
  - Back pain [None]
